FAERS Safety Report 8532188-5 (Version None)
Quarter: 2012Q3

REPORT INFORMATION
  Report Type: 
  Country: None (occurrence: None)
  Receive Date: 20120723
  Receipt Date: 20120716
  Transmission Date: 20120928
  Serious: Yes (Other)
  Sender: FDA-Public Use
  Company Number: US-RB-042459-12

PATIENT
  Age: 32 Year
  Sex: Female

DRUGS (1)
  1. SUBOXONE [Suspect]
     Indication: PRODUCT USED FOR UNKNOWN INDICATION
     Dosage: DOSING DETAILS UNKNOWN
     Route: 065

REACTIONS (7)
  - INSOMNIA [None]
  - HYPERTENSION [None]
  - HALLUCINATION, AUDITORY [None]
  - CHILLS [None]
  - UNDERDOSE [None]
  - PILOERECTION [None]
  - HYPERHIDROSIS [None]
